FAERS Safety Report 13573378 (Version 4)
Quarter: 2017Q2

REPORT INFORMATION
  Report Type: Spontaneous
  Country: JP (occurrence: JP)
  Receive Date: 20170523
  Receipt Date: 20170626
  Transmission Date: 20170830
  Serious: Yes (Death, Other)
  Sender: FDA-Public Use
  Company Number: JP-009507513-1705JPN001536J

PATIENT
  Age: 73 Year
  Sex: Male
  Weight: 38 kg

DRUGS (3)
  1. BETAMETHASONE. [Concomitant]
     Active Substance: BETAMETHASONE
     Indication: MALAISE
  2. KEYTRUDA [Suspect]
     Active Substance: PEMBROLIZUMAB
     Indication: LUNG ADENOCARCINOMA STAGE II
     Dosage: 200 MG, Q3W
     Route: 041
     Dates: start: 20170428, end: 20170505
  3. BETAMETHASONE. [Concomitant]
     Active Substance: BETAMETHASONE
     Indication: DECREASED APPETITE
     Dosage: 1 MG, QD
     Route: 048
     Dates: end: 20170501

REACTIONS (2)
  - Pneumonia aspiration [Fatal]
  - Malignant neoplasm progression [Fatal]

NARRATIVE: CASE EVENT DATE: 20170503
